FAERS Safety Report 21372135 (Version 1)
Quarter: 2022Q3

REPORT INFORMATION
  Report Type: Report from Study
  Country: US (occurrence: US)
  Receive Date: 20220923
  Receipt Date: 20220923
  Transmission Date: 20221027
  Serious: Yes (Hospitalization)
  Sender: FDA-Public Use
  Company Number: US-ALLERGAN-2230952US

PATIENT
  Sex: Male
  Weight: 68.038 kg

DRUGS (14)
  1. CYCLOSPORINE [Suspect]
     Active Substance: CYCLOSPORINE
     Indication: Vitreous floaters
     Dosage: 2 GTT, BID
     Route: 047
     Dates: start: 2019
  2. LINZESS [Concomitant]
     Active Substance: LINACLOTIDE
     Indication: Constipation
     Dosage: UNK
  3. DULOXETINE HYDROCHLORIDE [Concomitant]
     Active Substance: DULOXETINE HYDROCHLORIDE
     Dosage: 4 MG
  4. FUROSEMIDE [Concomitant]
     Active Substance: FUROSEMIDE
     Dosage: 80 MG
  5. TESTOSTERONE [Concomitant]
     Active Substance: TESTOSTERONE
     Dosage: UNK
  6. PRASTERONE [Concomitant]
     Active Substance: PRASTERONE
     Dosage: 25 MG
  7. VITAMIN C [Concomitant]
     Active Substance: ASCORBIC ACID
     Dosage: 500 MG, BID
  8. LEXAPRO [Concomitant]
     Active Substance: ESCITALOPRAM OXALATE
     Dosage: 2 DF, QAM
  9. ATORVASTATIN [Concomitant]
     Active Substance: ATORVASTATIN
     Dosage: 1 DF, QD
  10. VITAMIN B12 [Concomitant]
     Active Substance: CYANOCOBALAMIN
     Dosage: 1000 IU, Q MONTH
  11. COVID-19 VACCINE [Concomitant]
     Indication: COVID-19 immunisation
     Dosage: UNKNOWN
     Route: 030
  12. COVID-19 VACCINE [Concomitant]
     Dosage: UNKNOWN
     Route: 030
  13. COVID-19 VACCINE [Concomitant]
     Dosage: UNKNOWN
     Route: 030
  14. COVID-19 VACCINE [Concomitant]
     Dosage: UNKNOWN
     Route: 030

REACTIONS (4)
  - Cellulitis [Recovering/Resolving]
  - Dermatitis contact [Recovering/Resolving]
  - Infection [Unknown]
  - Off label use [Unknown]

NARRATIVE: CASE EVENT DATE: 20220912
